FAERS Safety Report 8551606-X (Version None)
Quarter: 2012Q3

REPORT INFORMATION
  Report Type: 
  Country: None (occurrence: None)
  Receive Date: 20120730
  Receipt Date: 20120721
  Transmission Date: 20120928
  Serious: Yes (Hospitalization, Other)
  Sender: FDA-Public Use
  Company Number: JP-VERTEX PHARMACEUTICALS INC.-AE-2012-008715

PATIENT
  Age: 66 Year
  Sex: Male

DRUGS (18)
  1. BISOPROLOL FUMARATE [Concomitant]
     Route: 048
     Dates: end: 20120323
  2. UBIRON [Concomitant]
     Route: 048
  3. RIBAVIRIN [Concomitant]
     Indication: HEPATITIS C
     Route: 048
     Dates: start: 20120306, end: 20120318
  4. REBAMIPIDE [Concomitant]
     Route: 048
  5. EPADEL S [Concomitant]
     Route: 048
     Dates: start: 20120306
  6. TELAVIC (TELAPREVIR) [Suspect]
     Indication: HEPATITIS C
     Route: 048
     Dates: start: 20120306, end: 20120423
  7. RIBAVIRIN [Concomitant]
     Route: 048
     Dates: start: 20120529
  8. PEG-INTRON [Concomitant]
     Route: 058
     Dates: start: 20120514
  9. RIBAVIRIN [Concomitant]
     Route: 048
     Dates: start: 20120319, end: 20120430
  10. NIZATIDINE [Concomitant]
     Route: 048
     Dates: start: 20120306
  11. PROMACTA [Concomitant]
     Route: 048
     Dates: start: 20120306
  12. TELAVIC (TELAPREVIR) [Suspect]
     Route: 048
     Dates: start: 20120508, end: 20120508
  13. PEG-INTRON [Concomitant]
     Indication: HEPATITIS C
     Route: 058
     Dates: start: 20120306, end: 20120513
  14. LOSARTAN POTASSIUM [Concomitant]
     Route: 048
     Dates: start: 20120427
  15. TELAVIC (TELAPREVIR) [Suspect]
     Route: 048
     Dates: start: 20120424, end: 20120507
  16. RIBAVIRIN [Concomitant]
     Route: 048
     Dates: start: 20120501, end: 20120528
  17. LENDEN D [Concomitant]
     Route: 048
     Dates: start: 20120307
  18. ELIETEN [Concomitant]
     Route: 048
     Dates: start: 20120313

REACTIONS (2)
  - RENAL IMPAIRMENT [None]
  - HAEMOGLOBIN DECREASED [None]
